FAERS Safety Report 4570399-4 (Version None)
Quarter: 2005Q1

REPORT INFORMATION
  Report Type: 
  Country: None (occurrence: None)
  Receive Date: 20050204
  Receipt Date: 20041001
  Transmission Date: 20050727
  Serious: Yes (Hospitalization, Other)
  Sender: FDA-Public Use
  Company Number: PHHO2004JP13979

PATIENT
  Age: 55 Year
  Sex: Female
  Weight: 45 kg

DRUGS (5)
  1. GLIVEC [Suspect]
     Indication: CHRONIC MYELOID LEUKAEMIA
     Dosage: 400 MG, QD
     Route: 048
     Dates: start: 20030708, end: 20030804
  2. GLIVEC [Suspect]
     Dosage: 200 MG, QD
     Route: 048
     Dates: start: 20030805, end: 20030810
  3. GLIVEC [Suspect]
     Dosage: 300 MG, QD
     Route: 048
     Dates: start: 20030811, end: 20030816
  4. GLIVEC [Suspect]
     Dosage: 200 MG, QD
     Dates: start: 20030817, end: 20040730
  5. GLIVEC [Suspect]
     Dosage: 200 MG, QD
     Route: 048
     Dates: start: 20040802, end: 20040901

REACTIONS (8)
  - CHEST PAIN [None]
  - CHRONIC OBSTRUCTIVE PULMONARY DISEASE [None]
  - COUGH [None]
  - DIFFICULTY IN WALKING [None]
  - DYSPNOEA [None]
  - INFECTION [None]
  - PRODUCTIVE COUGH [None]
  - WHEEZING [None]
